FAERS Safety Report 9597048 (Version 1)
Quarter: 2013Q4

REPORT INFORMATION
  Report Type: Spontaneous
  Country: JP (occurrence: JP)
  Receive Date: 20131004
  Receipt Date: 20131004
  Transmission Date: 20140711
  Serious: Yes (Death, Hospitalization)
  Sender: FDA-Public Use
  Company Number: PHHY2013JP107910

PATIENT
  Age: 7 Year
  Sex: Female

DRUGS (2)
  1. LAMOTRIGINE [Suspect]
     Indication: EPILEPSY
     Dosage: 20 MG, QD
  2. LAMOTRIGINE [Suspect]
     Dosage: 25 MG, QD

REACTIONS (8)
  - Cardiac failure chronic [Fatal]
  - Cardiogenic shock [Unknown]
  - Myocarditis [Unknown]
  - Hypothyroidism [Unknown]
  - Drug reaction with eosinophilia and systemic symptoms [Unknown]
  - Pyrexia [Unknown]
  - Rash [Unknown]
  - Epilepsy [Unknown]
